FAERS Safety Report 20394549 (Version 2)
Quarter: 2022Q1

REPORT INFORMATION
  Report Type: Spontaneous
  Country: JP (occurrence: JP)
  Receive Date: 20220129
  Receipt Date: 20220203
  Transmission Date: 20220423
  Serious: Yes (Life-Threatening, Other)
  Sender: FDA-Public Use
  Company Number: JP-BAYER-2021A262379

PATIENT
  Age: 8 Decade
  Sex: Male

DRUGS (4)
  1. RIVAROXABAN [Interacting]
     Active Substance: RIVAROXABAN
     Indication: Atrial fibrillation
     Dosage: 15 MG DAILY FROM 6TH TO 14TH DAY OF HOSPITALIZATION
     Route: 048
  2. RIVAROXABAN [Interacting]
     Active Substance: RIVAROXABAN
     Dosage: 10 MG DAILY FROM 15TH TO 20TH DAY OF HOSPITALIZATION
     Route: 048
  3. ASPIRIN [Suspect]
     Active Substance: ASPIRIN
     Dosage: 100 MG DAILY FROM 5TH TO 9TH DAY OF HOSPITALIZATION
     Route: 065
  4. PRASUGREL HYDROCHLORIDE [Interacting]
     Active Substance: PRASUGREL HYDROCHLORIDE
     Dosage: 3.75MG DAILY FROM THE 5TH DAY OF HOSPITALIZATION

REACTIONS (10)
  - Cardio-respiratory arrest [Unknown]
  - Gastrointestinal haemorrhage [Unknown]
  - Diabetic ketoacidosis [Unknown]
  - Melaena [Unknown]
  - Blood loss anaemia [Unknown]
  - Vascular stent thrombosis [Unknown]
  - Drug interaction [Unknown]
  - Haemoglobin decreased [Unknown]
  - Gastric mucosal lesion [Unknown]
  - Decreased appetite [Unknown]
